FAERS Safety Report 9767909 (Version 1)
Quarter: 2013Q4

REPORT INFORMATION
  Report Type: Spontaneous
  Country: US (occurrence: US)
  Receive Date: 20131217
  Receipt Date: 20131217
  Transmission Date: 20140711
  Serious: Yes (Other)
  Sender: FDA-Public Use
  Company Number: US-BAYER-2013-149338

PATIENT
  Age: 79 Year
  Sex: Female
  Weight: 84 kg

DRUGS (2)
  1. ALEVE CAPLET [Suspect]
     Indication: ARTHRITIS
     Dosage: 1 DF, QD
     Route: 048
     Dates: start: 20131201, end: 20131204
  2. HYDROXYZINE [Concomitant]

REACTIONS (3)
  - Tongue haemorrhage [Recovered/Resolved]
  - Tongue discolouration [Recovered/Resolved]
  - Swollen tongue [Recovered/Resolved]
